FAERS Safety Report 11151140 (Version 1)
Quarter: 2015Q2

REPORT INFORMATION
  Report Type: Spontaneous
  Country: US (occurrence: US)
  Receive Date: 20150601
  Receipt Date: 20150601
  Transmission Date: 20150821
  Serious: No
  Sender: FDA-Public Use
  Company Number: US-BAYER-2015-282201

PATIENT
  Age: 17 Month
  Sex: Female
  Weight: 9.98 kg

DRUGS (2)
  1. MIRALAX [Suspect]
     Active Substance: POLYETHYLENE GLYCOL 3350
     Indication: CONSTIPATION
     Dosage: 1/4-1/2 DOSE, QD
     Route: 048
     Dates: start: 201501
  2. ANTIBIOTIC [CHLORAMPHENICOL] [Concomitant]
     Dosage: UNK

REACTIONS (2)
  - Incorrect drug administration duration [None]
  - Drug administered to patient of inappropriate age [None]

NARRATIVE: CASE EVENT DATE: 201501
